FAERS Safety Report 14960864 (Version 1)
Quarter: 2018Q2

REPORT INFORMATION
  Report Type: Report from Study
  Country: US (occurrence: US)
  Receive Date: 20180531
  Receipt Date: 20180531
  Transmission Date: 20180711
  Serious: Yes (Other)
  Sender: FDA-Public Use
  Company Number: US-AMGEN-USASL2018000528

PATIENT
  Age: 82 Year
  Sex: Male

DRUGS (1)
  1. REPATHA [Suspect]
     Active Substance: EVOLOCUMAB
     Indication: HYPERLIPIDAEMIA
     Dosage: 140 MG, Q2WK
     Route: 065
     Dates: start: 201706

REACTIONS (3)
  - Product storage error [Unknown]
  - Device dislocation [Unknown]
  - Visual impairment [Unknown]

NARRATIVE: CASE EVENT DATE: 2017
